FAERS Safety Report 11327467 (Version 5)
Quarter: 2015Q4

REPORT INFORMATION
  Report Type: Spontaneous
  Country: US (occurrence: US)
  Receive Date: 20150731
  Receipt Date: 20151229
  Transmission Date: 20160304
  Serious: Yes (Hospitalization)
  Sender: FDA-Public Use
  Company Number: US-PFIZER INC-2015255092

PATIENT
  Age: 49 Year
  Sex: Female

DRUGS (15)
  1. CLINDAMYCIN [Concomitant]
     Active Substance: CLINDAMYCIN\CLINDAMYCIN PHOSPHATE
     Dosage: UNK
  2. VENTOLIN [Concomitant]
     Active Substance: ALBUTEROL SULFATE
     Dosage: UNK
  3. SKELAXIN [Suspect]
     Active Substance: METAXALONE
     Indication: INFLAMMATORY PAIN
     Dosage: 800 MG, 3X/DAY (EVERY 8 HOURS AS NEEDED)
     Route: 048
     Dates: start: 201401, end: 201412
  4. BENZOYL PEROXIDE. [Concomitant]
     Active Substance: BENZOYL PEROXIDE
     Dosage: UNK
  5. LYRICA [Suspect]
     Active Substance: PREGABALIN
     Indication: PAIN
     Dosage: 150 MG, 4X/DAY
     Route: 048
     Dates: start: 201501
  6. SKELAXIN [Suspect]
     Active Substance: METAXALONE
     Indication: MUSCLE SPASMS
     Dosage: 800 MG, 3X/DAY (EVERY 8 HOURS AS NEEDED)
     Route: 048
     Dates: start: 201308, end: 201312
  7. LYRICA [Suspect]
     Active Substance: PREGABALIN
     Indication: FIBROMYALGIA
     Dosage: 150 MG, 4X/DAY
     Route: 048
     Dates: start: 201308, end: 201312
  8. VITAMIN D [Concomitant]
     Active Substance: CHOLECALCIFEROL
     Dosage: UNK
     Dates: start: 2012
  9. OMEPRAZOLE. [Concomitant]
     Active Substance: OMEPRAZOLE
     Dosage: UNK
     Dates: start: 2015
  10. ACETAMINOPHEN. [Concomitant]
     Active Substance: ACETAMINOPHEN
     Dosage: UNK
     Dates: start: 2014
  11. LYRICA [Suspect]
     Active Substance: PREGABALIN
     Indication: NEURALGIA
     Dosage: 150 MG, 4X/DAY
     Route: 048
     Dates: start: 201401, end: 201412
  12. LEVOTHYROXINE. [Concomitant]
     Active Substance: LEVOTHYROXINE
     Dosage: UNK
     Dates: start: 2012
  13. APAP [Concomitant]
     Active Substance: ACETAMINOPHEN
     Dosage: UNK
  14. LYRICA [Suspect]
     Active Substance: PREGABALIN
     Indication: MAJOR DEPRESSION
  15. SKELAXIN [Suspect]
     Active Substance: METAXALONE
     Dosage: 800 MG, 3X/DAY (EVERY 8 HOURS AS NEEDED)
     Route: 048
     Dates: start: 201501

REACTIONS (15)
  - Headache [Not Recovered/Not Resolved]
  - Crying [Unknown]
  - Decreased appetite [Unknown]
  - Abdominal pain upper [Unknown]
  - Pain [Unknown]
  - Malaise [Not Recovered/Not Resolved]
  - Abdominal discomfort [Unknown]
  - Eructation [Not Recovered/Not Resolved]
  - Vomiting [Recovered/Resolved]
  - Nausea [Unknown]
  - Nervousness [Unknown]
  - Asthenia [Unknown]
  - Migraine [Unknown]
  - Nerve injury [Unknown]
  - Constipation [Unknown]
